FAERS Safety Report 10229958 (Version 1)
Quarter: 2014Q2

REPORT INFORMATION
  Report Type: Spontaneous
  Country: US (occurrence: None)
  Receive Date: 20140609
  Receipt Date: 20140609
  Transmission Date: 20141212
  Serious: Yes (Hospitalization)
  Sender: FDA-Public Use
  Company Number: UNT-2014-000185

PATIENT
  Age: 72 Year
  Sex: Female
  Weight: 52.6 kg

DRUGS (2)
  1. TYVASO [Suspect]
     Indication: COR PULMONALE CHRONIC
     Route: 055
     Dates: start: 20130514
  2. ADCIRCA (TADALAFIL) [Concomitant]

REACTIONS (1)
  - Gait disturbance [None]
